FAERS Safety Report 8015479-6 (Version None)
Quarter: 2011Q4

REPORT INFORMATION
  Report Type: 
  Country: None (occurrence: None)
  Receive Date: 20111230
  Receipt Date: 20111228
  Transmission Date: 20120403
  Serious: Yes (Death, Hospitalization)
  Sender: FDA-Public Use
  Company Number: KR-BAYER-2011-112184

PATIENT
  Age: 52 Year
  Sex: Female
  Weight: 47 kg

DRUGS (4)
  1. SORAFENIB (RAF KINASE INHIBITOR) [Suspect]
     Dosage: 400 MG, BID
     Dates: start: 20111101, end: 20111118
  2. CAPECITABINE [Suspect]
     Indication: GASTRIC CANCER
     Dosage: 2300MG/DAY, FREQUENCY: BID
     Dates: start: 20111101, end: 20111115
  3. CISPLATIN [Suspect]
     Indication: GASTRIC CANCER
     Dosage: 90MG OD
     Dates: start: 20111101
  4. SORAFENIB (RAF KINASE INHIBITOR) [Suspect]
     Indication: GASTRIC CANCER
     Dosage: 800MG/DAY, FREQUENCY: BID
     Dates: start: 20111012

REACTIONS (3)
  - CEREBRAL INFARCTION [None]
  - SOMNOLENCE [None]
  - DEATH [None]
